FAERS Safety Report 22192502 (Version 1)
Quarter: 2023Q2

REPORT INFORMATION
  Report Type: Spontaneous
  Country: US (occurrence: US)
  Receive Date: 20230410
  Receipt Date: 20230410
  Transmission Date: 20230722
  Serious: Yes (Other)
  Sender: FDA-Public Use
  Company Number: US-PFIZER INC-202300144499

PATIENT
  Age: 67 Year
  Sex: Female

DRUGS (2)
  1. BRAFTOVI [Suspect]
     Active Substance: ENCORAFENIB
     Indication: Colon cancer metastatic
     Dosage: UNK, 1X/DAY
  2. FENTANYL CITRATE [Concomitant]
     Active Substance: FENTANYL CITRATE
     Dosage: 37 UG

REACTIONS (5)
  - Rhabdomyolysis [Unknown]
  - Arthritis [Unknown]
  - Pain in extremity [Unknown]
  - Arthralgia [Unknown]
  - Somnolence [Unknown]
